FAERS Safety Report 4929226-5 (Version None)
Quarter: 2006Q1

REPORT INFORMATION
  Report Type: 
  Country: None (occurrence: None)
  Receive Date: 20060301
  Receipt Date: 20060210
  Transmission Date: 20060701
  Serious: Yes (Hospitalization)
  Sender: FDA-Public Use
  Company Number: US-MERCK-0602USA03407

PATIENT
  Age: 68 Year
  Sex: Female
  Weight: 109 kg

DRUGS (17)
  1. VIOXX [Suspect]
     Indication: BACK PAIN
     Route: 048
     Dates: start: 20010101, end: 20040930
  2. VIOXX [Suspect]
     Route: 048
     Dates: start: 20010101, end: 20040930
  3. VIOXX [Suspect]
     Indication: SHOULDER PAIN
     Route: 048
     Dates: start: 20010101, end: 20040930
  4. VIOXX [Suspect]
     Route: 048
     Dates: start: 20010101, end: 20040930
  5. TYLENOL (CAPLET) [Concomitant]
     Route: 065
  6. ADVIL [Concomitant]
     Route: 065
  7. ULTRACET [Concomitant]
     Route: 065
  8. PREMARIN [Concomitant]
     Route: 065
  9. CARDIZEM [Concomitant]
     Route: 065
  10. PLAVIX [Concomitant]
     Route: 065
  11. LISINOPRIL [Concomitant]
     Route: 065
  12. METOPROLOL [Concomitant]
     Route: 065
  13. ASPIRIN [Concomitant]
     Route: 065
  14. HYDROCHLOROTHIAZIDE [Concomitant]
     Route: 065
  15. METFORMIN [Concomitant]
     Route: 065
  16. BENADRYL [Concomitant]
     Route: 065
  17. SULAR [Concomitant]
     Route: 065

REACTIONS (12)
  - ARTHRITIS [None]
  - CARDIOMEGALY [None]
  - CHEST PAIN [None]
  - CORONARY ARTERY DISEASE [None]
  - DIABETES MELLITUS NON-INSULIN-DEPENDENT [None]
  - FALL [None]
  - HYPERSENSITIVITY [None]
  - LACUNAR INFARCTION [None]
  - MENINGIOMA [None]
  - PRESCRIBED OVERDOSE [None]
  - TROPONIN [None]
  - VIRAL INFECTION [None]
